FAERS Safety Report 7900510-6 (Version None)
Quarter: 2011Q4

REPORT INFORMATION
  Report Type: 
  Country: None (occurrence: None)
  Receive Date: 20111108
  Receipt Date: 20111107
  Transmission Date: 20120403
  Serious: Yes (Other)
  Sender: FDA-Public Use
  Company Number: US-PFIZER INC-2011249100

PATIENT
  Sex: Male
  Weight: 68 kg

DRUGS (3)
  1. CARDIZEM CD [Concomitant]
     Indication: HYPERTENSION
     Dosage: 180 MG, 1X/DAY
     Route: 048
  2. BUMEX [Suspect]
     Indication: OEDEMA PERIPHERAL
     Dosage: 1 MG, 1X/DAY
     Route: 048
  3. ALTACE [Suspect]
     Indication: HYPERTENSION
     Dosage: 10 MG, 1X/DAY
     Route: 048

REACTIONS (2)
  - ANGIOEDEMA [None]
  - DRUG ADMINISTRATION ERROR [None]
